FAERS Safety Report 14860238 (Version 1)
Quarter: 2018Q2

REPORT INFORMATION
  Report Type: Report from Study
  Country: FR (occurrence: FR)
  Receive Date: 20180508
  Receipt Date: 20180508
  Transmission Date: 20180711
  Serious: Yes (Other)
  Sender: FDA-Public Use
  Company Number: FR-ACCORD-066535

PATIENT
  Age: 37 Year
  Sex: Female

DRUGS (3)
  1. MELPHALAN. [Suspect]
     Active Substance: MELPHALAN
     Indication: TRANSPLANT
     Dosage: UNK
     Route: 065
  2. ARACYTINE [Suspect]
     Active Substance: CYTARABINE
     Indication: TRANSPLANT
     Dosage: UNK
     Route: 065
  3. ETOPOSIDE. [Suspect]
     Active Substance: ETOPOSIDE
     Indication: TRANSPLANT
     Route: 065

REACTIONS (3)
  - Off label use [Unknown]
  - Hypovolaemic shock [Recovered/Resolved]
  - Human herpesvirus 6 infection [Recovered/Resolved]
